FAERS Safety Report 5220153-5 (Version None)
Quarter: 2006Q4

REPORT INFORMATION
  Report Type: 
  Country: None (occurrence: None)
  Receive Date: 20061121
  Receipt Date: 20060901
  Transmission Date: 20070319
  Serious: No
  Sender: FDA-Public Use
  Company Number: TPA2006A01504

PATIENT
  Age: 77 Year
  Sex: Male
  Weight: 86.1834 kg

DRUGS (5)
  1. ROZEREM [Suspect]
     Indication: INSOMNIA
     Dosage: 8 MG, HS, PER ORAL
     Route: 048
     Dates: start: 20060830
  2. DIOVAN [Concomitant]
  3. COUMADIN [Concomitant]
  4. PROPYLTHIOURACIL [Concomitant]
  5. NORVASC [Concomitant]

REACTIONS (2)
  - INITIAL INSOMNIA [None]
  - INSOMNIA [None]
